FAERS Safety Report 5780301-5 (Version None)
Quarter: 2008Q2

REPORT INFORMATION
  Report Type: 
  Country: None (occurrence: None)
  Receive Date: 20080620
  Receipt Date: 20080610
  Transmission Date: 20081010
  Serious: Yes (Death)
  Sender: FDA-Public Use
  Company Number: JP-AVENTIS-200413251JP

PATIENT
  Age: 41 Year
  Sex: Female
  Weight: 58.5 kg

DRUGS (11)
  1. ARAVA [Suspect]
     Indication: RHEUMATOID ARTHRITIS
     Route: 048
     Dates: start: 20040607, end: 20040609
  2. ARAVA [Suspect]
     Route: 048
     Dates: start: 20040610, end: 20041008
  3. PREDNISOLONE [Concomitant]
     Route: 048
  4. FAMOTIDINE [Concomitant]
     Indication: GASTRITIS PROPHYLAXIS
     Route: 048
     Dates: start: 20040607, end: 20041014
  5. ROCALTROL [Concomitant]
     Indication: OSTEOPOROSIS
     Route: 048
     Dates: start: 20040812, end: 20041014
  6. PREDNISOLONE [Concomitant]
     Route: 048
     Dates: end: 20041014
  7. LOXONIN                            /00890701/ [Concomitant]
     Indication: PAIN
     Route: 048
     Dates: end: 20040811
  8. RHEUMATREX                         /00113801/ [Concomitant]
     Indication: RHEUMATOID ARTHRITIS
     Route: 048
     Dates: start: 20010116, end: 20010207
  9. RHEUMATREX                         /00113801/ [Concomitant]
     Route: 048
     Dates: start: 20010213, end: 20010531
  10. RHEUMATREX                         /00113801/ [Concomitant]
     Dosage: DOSE: 8 MG
     Route: 048
     Dates: end: 20040606
  11. MUCOSTA [Concomitant]
     Dosage: DOSE: 3 TABLETS
     Route: 048
     Dates: end: 20040606

REACTIONS (6)
  - HEADACHE [None]
  - HYPERTENSION [None]
  - HYPERVENTILATION [None]
  - MALAISE [None]
  - PRURITUS [None]
  - SUBARACHNOID HAEMORRHAGE [None]
